FAERS Safety Report 8306018-0 (Version None)
Quarter: 2012Q1

REPORT INFORMATION
  Report Type: 
  Country: None (occurrence: None)
  Receive Date: 20120327
  Receipt Date: 20091102
  Transmission Date: 20120608
  Serious: Yes (Other)
  Sender: FDA-Public Use
  Company Number: PHEH2009US14484

PATIENT
  Age: 79 Year
  Sex: Male

DRUGS (5)
  1. GLEEVEC [Suspect]
     Indication: CHRONIC MYELOID LEUKAEMIA
     Dosage: 600 MG DAILY
     Dates: start: 20000101, end: 20091019
  2. ARICEPT [Concomitant]
  3. SINEMET 10/100 (CARBIDOPA, LEVODOPA) [Concomitant]
  4. LEXAPRO [Concomitant]
  5. SYNTHROID [Concomitant]

REACTIONS (4)
  - WHITE BLOOD CELL COUNT INCREASED [None]
  - HAEMOGLOBIN DECREASED [None]
  - NEOPLASM PROGRESSION [None]
  - NEOPLASM MALIGNANT [None]
